FAERS Safety Report 7481267-2 (Version None)
Quarter: 2011Q2

REPORT INFORMATION
  Report Type: 
  Country: None (occurrence: None)
  Receive Date: 20110505
  Receipt Date: 20110324
  Transmission Date: 20111010
  Serious: Yes (Death, Hospitalization)
  Sender: FDA-Public Use
  Company Number: DSA_45141_2011

PATIENT
  Sex: Female

DRUGS (14)
  1. DOCUSATE SODIUM [Concomitant]
  2. FOSAMAX [Concomitant]
  3. TRAZODONE HCL [Concomitant]
  4. PROMETHAZINE [Concomitant]
  5. XENAZINE [Suspect]
     Indication: HUNTINGTON'S DISEASE
     Dosage: 12.5 MG, BID, ORAL
     Route: 048
     Dates: start: 20101228, end: 20110224
  6. IBUPOROFEN [Concomitant]
  7. VALIUM [Concomitant]
  8. VITAMIN D [Concomitant]
  9. ZOLOFT [Concomitant]
  10. ZIAC [Concomitant]
  11. LYRICA [Concomitant]
  12. MIRALAX [Concomitant]
  13. NAPROXEN [Concomitant]
  14. PERCOCET [Concomitant]

REACTIONS (24)
  - DECUBITUS ULCER [None]
  - LETHARGY [None]
  - MAJOR DEPRESSION [None]
  - MUSCULOSKELETAL PAIN [None]
  - HYPOTENSION [None]
  - LEUKOPENIA [None]
  - PNEUMONIA [None]
  - EXTRADURAL ABSCESS [None]
  - DYSPHAGIA [None]
  - HEADACHE [None]
  - SOMNOLENCE [None]
  - ANURIA [None]
  - ENCEPHALOPATHY [None]
  - MUSCLE SPASMS [None]
  - HYPOPHAGIA [None]
  - FALL [None]
  - STAPHYLOCOCCAL INFECTION [None]
  - NECK PAIN [None]
  - BACK PAIN [None]
  - HYPOKALAEMIA [None]
  - SEPSIS [None]
  - RENAL FAILURE ACUTE [None]
  - ACUTE RESPIRATORY FAILURE [None]
  - DEHYDRATION [None]
